FAERS Safety Report 5441530-3 (Version None)
Quarter: 2007Q3

REPORT INFORMATION
  Report Type: 
  Country: None (occurrence: None)
  Receive Date: 20070830
  Receipt Date: 20070830
  Transmission Date: 20080115
  Serious: No
  Sender: FDA-Public Use
  Company Number: None

PATIENT
  Age: 46 Year
  Sex: Female
  Weight: 59.8748 kg

DRUGS (3)
  1. PERPHENAZINE [Suspect]
  2. LANMICTAL [Concomitant]
  3. CLONEZTAN [Concomitant]

REACTIONS (3)
  - BREAST CANCER [None]
  - CHEST PAIN [None]
  - PAIN [None]
